FAERS Safety Report 8845671 (Version 2)
Quarter: 2012Q4

REPORT INFORMATION
  Report Type: Report from Study
  Country: DK (occurrence: DK)
  Receive Date: 20121017
  Receipt Date: 20121019
  Transmission Date: 20130627
  Serious: Yes (Hospitalization)
  Sender: FDA-Public Use
  Company Number: DK-ROCHE-1144535

PATIENT
  Age: 58 Year
  Sex: Male

DRUGS (8)
  1. BEVACIZUMAB [Suspect]
     Indication: METASTATIC RENAL CELL CARCINOMA
     Route: 042
     Dates: start: 20120730
  2. BEVACIZUMAB [Suspect]
     Dosage: No of course-3
     Route: 042
     Dates: start: 20121008, end: 20121008
  3. ALDESLEUKIN [Suspect]
     Indication: METASTATIC RENAL CELL CARCINOMA
     Dosage: 5 x 10^6
     Route: 058
     Dates: start: 20120730
  4. ALDESLEUKIN [Suspect]
     Dosage: 5 x 10^6, no of course-3
     Route: 058
     Dates: start: 20120924, end: 20121005
  5. INTERFERON ALFA-2B [Suspect]
     Indication: METASTATIC RENAL CELL CARCINOMA
     Dosage: 3 x 10^6
     Route: 058
     Dates: start: 20120723
  6. METFORMIN [Concomitant]
     Route: 065
     Dates: start: 2000, end: 20121009
  7. SIMVASTATIN [Concomitant]
     Route: 065
     Dates: start: 2000
  8. MAGNYL [Concomitant]

REACTIONS (3)
  - Anaphylactic reaction [Recovered/Resolved]
  - Constipation [Recovered/Resolved]
  - Back pain [Recovered/Resolved]
